FAERS Safety Report 17308436 (Version 2)
Quarter: 2020Q1

REPORT INFORMATION
  Report Type: Spontaneous
  Country: FR (occurrence: FR)
  Receive Date: 20200123
  Receipt Date: 20200203
  Transmission Date: 20200409
  Serious: Yes (Hospitalization)
  Sender: FDA-Public Use
  Company Number: FR-TEVA-2020-FR-1171777

PATIENT
  Age: 30 Year
  Sex: Male
  Weight: 115 kg

DRUGS (7)
  1. MODIODAL [Suspect]
     Active Substance: MODAFINIL
     Indication: NARCOLEPSY
     Dates: start: 20101011
  2. METFORMINE [Concomitant]
     Active Substance: METFORMIN HYDROCHLORIDE
     Indication: DIABETES MELLITUS
     Dosage: 850 MG
  3. EFFEXOR [Suspect]
     Active Substance: VENLAFAXINE HYDROCHLORIDE
     Indication: DEPRESSION
     Dosage: 75 MG
     Dates: start: 20101011
  4. CANDESARTAN ARROW 4 MG, COMPRIM? S?CABLE [Concomitant]
     Indication: CARDIOMYOPATHY
  5. OMEPRAZOLE. [Concomitant]
     Active Substance: OMEPRAZOLE
     Indication: PRODUCT USED FOR UNKNOWN INDICATION
     Dosage: 20 MG
  6. GLUCOR 100 MG, COMPRIME SECABLE [Concomitant]
     Indication: DIABETES MELLITUS
     Dosage: 300 MG
  7. RITALINE L.P. 30 MG, G?LULE ? LIB?RATION PROLONG?E [Suspect]
     Active Substance: METHYLPHENIDATE HYDROCHLORIDE
     Indication: NARCOLEPSY
     Dosage: 60 MG
     Route: 048
     Dates: start: 201110, end: 20191101

REACTIONS (1)
  - Congestive cardiomyopathy [Not Recovered/Not Resolved]

NARRATIVE: CASE EVENT DATE: 20190906
